FAERS Safety Report 6172333-2 (Version None)
Quarter: 2009Q2

REPORT INFORMATION
  Report Type: 
  Country: None (occurrence: None)
  Receive Date: 20090429
  Receipt Date: 20090420
  Transmission Date: 20091009
  Serious: Yes (Other)
  Sender: FDA-Public Use
  Company Number: AU-ASTRAZENECA-2009AP02535

PATIENT
  Age: 22719 Day
  Sex: Male
  Weight: 86 kg

DRUGS (1)
  1. MARCAINE [Suspect]
     Dosage: 0.5MG WITH ADRENALINE 5 X 20ML

REACTIONS (1)
  - ACCIDENT AT WORK [None]
